FAERS Safety Report 23191441 (Version 5)
Quarter: 2023Q4

REPORT INFORMATION
  Report Type: Report from Study
  Country: US (occurrence: US)
  Receive Date: 20231116
  Receipt Date: 20231220
  Transmission Date: 20240109
  Serious: No
  Sender: FDA-Public Use
  Company Number: US-002147023-NVSC2023US244167

PATIENT

DRUGS (1)
  1. KESIMPTA [Suspect]
     Active Substance: OFATUMUMAB
     Indication: Product used for unknown indication
     Dosage: UNK
     Route: 065
     Dates: start: 20231109

REACTIONS (10)
  - Injection site bruising [Unknown]
  - Injection site haemorrhage [Unknown]
  - Eye infection [Unknown]
  - Influenza like illness [Recovering/Resolving]
  - Pain [Recovering/Resolving]
  - Chills [Recovering/Resolving]
  - Throat irritation [Recovering/Resolving]
  - Nasopharyngitis [Unknown]
  - Upper respiratory tract infection [Unknown]
  - Injection related reaction [Recovering/Resolving]
